FAERS Safety Report 7585530-6 (Version None)
Quarter: 2011Q2

REPORT INFORMATION
  Report Type: 
  Country: None (occurrence: None)
  Receive Date: 20110628
  Receipt Date: 20110628
  Transmission Date: 20111010
  Serious: Yes (Hospitalization)
  Sender: FDA-Public Use
  Company Number: None

PATIENT
  Age: 39 Year
  Sex: Female
  Weight: 48.5349 kg

DRUGS (1)
  1. CYMBALTA [Suspect]
     Indication: FIBROMYALGIA
     Dosage: 1 PILL 30 MG DAILY DAILY
     Dates: start: 20110615

REACTIONS (11)
  - FEELING ABNORMAL [None]
  - ABASIA [None]
  - DIZZINESS [None]
  - FEELING HOT [None]
  - BURNING SENSATION [None]
  - FATIGUE [None]
  - GAIT DISTURBANCE [None]
  - ASTHENIA [None]
  - ANXIETY [None]
  - SENSATION OF HEAVINESS [None]
  - CONFUSIONAL STATE [None]
